FAERS Safety Report 18125434 (Version 1)
Quarter: 2020Q3

REPORT INFORMATION
  Report Type: Report from Study
  Country: US (occurrence: US)
  Receive Date: 20200807
  Receipt Date: 20200807
  Transmission Date: 20201103
  Serious: Yes (Other)
  Sender: FDA-Public Use
  Company Number: NVSC2020US219732

PATIENT
  Sex: Female

DRUGS (2)
  1. ESTRADIOL. [Suspect]
     Active Substance: ESTRADIOL
     Indication: MENOPAUSE
     Dosage: UNK UNK, Q2W
     Route: 065
  2. THYROID GLAND POWDER [Suspect]
     Active Substance: THYROID, UNSPECIFIED
     Indication: AUTOIMMUNE THYROIDITIS
     Dosage: 90 MG
     Route: 048
     Dates: start: 2012

REACTIONS (3)
  - Malaise [Unknown]
  - Thyroid function test abnormal [Unknown]
  - Product dose omission issue [Unknown]
